FAERS Safety Report 6305745-4 (Version None)
Quarter: 2009Q3

REPORT INFORMATION
  Report Type: 
  Country: None (occurrence: None)
  Receive Date: 20090812
  Receipt Date: 20070604
  Transmission Date: 20100115
  Serious: Yes (Hospitalization, Other)
  Sender: FDA-Public Use
  Company Number: US-ASTRAZENECA-2006UW25943

PATIENT
  Age: 31195 Day
  Sex: Male
  Weight: 74.8 kg

DRUGS (10)
  1. SEROQUEL [Suspect]
     Route: 048
     Dates: start: 20041104, end: 20060101
  2. ACTOS [Concomitant]
     Dates: start: 20040203
  3. FLOMAX [Concomitant]
     Dates: start: 20040305
  4. NORVASC [Concomitant]
     Dates: start: 20041104
  5. PEPCID [Concomitant]
     Dates: start: 20041104
  6. LASIX [Concomitant]
     Dosage: 20 - 120 MG
     Dates: start: 20041104
  7. DIGOXIN [Concomitant]
     Dates: start: 20041123
  8. VASOTEC [Concomitant]
     Dates: start: 20051230
  9. CEPHALEXIN [Concomitant]
     Dates: start: 20040513
  10. PREVACHOL [Concomitant]
     Dates: start: 20060816

REACTIONS (8)
  - DIABETES MELLITUS [None]
  - DIABETES MELLITUS INADEQUATE CONTROL [None]
  - DIABETIC FOOT [None]
  - DIABETIC NEUROPATHY [None]
  - DIABETIC ULCER [None]
  - HYPOGLYCAEMIA [None]
  - INSULIN-REQUIRING TYPE 2 DIABETES MELLITUS [None]
  - TYPE 2 DIABETES MELLITUS [None]
